FAERS Safety Report 7404542-6 (Version None)
Quarter: 2011Q2

REPORT INFORMATION
  Report Type: 
  Country: None (occurrence: None)
  Receive Date: 20110411
  Receipt Date: 20110328
  Transmission Date: 20111010
  Serious: Yes (Other)
  Sender: FDA-Public Use
  Company Number: US-MYLANLABS-2011S1006568

PATIENT
  Age: 10 Year
  Sex: Female

DRUGS (8)
  1. AMIFOSTINE [Concomitant]
     Indication: PROPHYLACTIC CHEMOTHERAPY
     Dosage: FOR 5 DAYS
     Route: 065
  2. THIOTEPA [Suspect]
     Indication: STEM CELL TRANSPLANT
     Dosage: FOR 2 DAYS
     Route: 065
  3. PENTAMIDINE ISETHIONATE [Concomitant]
     Indication: PROPHYLAXIS
     Route: 065
  4. BUSULFAN [Suspect]
     Indication: STEM CELL TRANSPLANT
     Dosage: FOR 3 DAYS
     Route: 065
  5. CASPOFUNGIN [Concomitant]
     Indication: PROPHYLAXIS
     Route: 065
  6. ACYCLOVIR [Concomitant]
     Indication: PROPHYLAXIS
     Route: 065
  7. MELPHALAN [Suspect]
     Indication: STEM CELL TRANSPLANT
     Dosage: FOR 2 DAYS
     Route: 065
  8. NYSTATIN [Concomitant]
     Indication: PROPHYLAXIS
     Route: 065

REACTIONS (3)
  - LYMPHOPENIA [None]
  - POLYOMAVIRUS-ASSOCIATED NEPHROPATHY [None]
  - HYPOGAMMAGLOBULINAEMIA [None]
